FAERS Safety Report 16254321 (Version 1)
Quarter: 2019Q2

REPORT INFORMATION
  Report Type: Spontaneous
  Country: US (occurrence: US)
  Receive Date: 20190430
  Receipt Date: 20190430
  Transmission Date: 20190711
  Serious: Yes (Hospitalization, Other)
  Sender: FDA-Public Use
  Company Number: US-GLAXOSMITHKLINE-US2019AMR074893

PATIENT

DRUGS (1)
  1. BENLYSTA [Suspect]
     Active Substance: BELIMUMAB
     Indication: PRODUCT USED FOR UNKNOWN INDICATION
     Dosage: EVERY MONTH
     Route: 042
     Dates: start: 2017

REACTIONS (6)
  - Hospitalisation [Unknown]
  - Ill-defined disorder [Unknown]
  - Kidney infection [Recovered/Resolved]
  - Inflammatory marker decreased [Unknown]
  - White blood cell count abnormal [Unknown]
  - Product dose omission [Unknown]
